FAERS Safety Report 22160862 (Version 1)
Quarter: 2023Q1

REPORT INFORMATION
  Report Type: Spontaneous
  Country: US (occurrence: None)
  Receive Date: 20230331
  Receipt Date: 20230331
  Transmission Date: 20230418
  Serious: Yes (Life-Threatening, Hospitalization)
  Sender: FDA-Public Use
  Company Number: None

PATIENT
  Age: 43 Year
  Sex: Male
  Weight: 114 kg

DRUGS (1)
  1. SUGAMMADEX [Suspect]
     Active Substance: SUGAMMADEX
     Dosage: 200 MG ONCE INTRAVENOUS ?
     Route: 042

REACTIONS (2)
  - Hypoxia [None]
  - Cardiac arrest [None]

NARRATIVE: CASE EVENT DATE: 20230323
